FAERS Safety Report 6107635-9 (Version None)
Quarter: 2009Q1

REPORT INFORMATION
  Report Type: 
  Country: None (occurrence: None)
  Receive Date: 20090302
  Receipt Date: 20080612
  Transmission Date: 20090719
  Serious: Yes (Disabling, Other)
  Sender: FDA-Public Use
  Company Number: ALA_00072_2008

PATIENT
  Sex: Female

DRUGS (1)
  1. REGLAN [Suspect]
     Indication: GASTRIC DISORDER
     Dosage: (DF ORAL)
     Route: 048
     Dates: start: 19920601, end: 20070401

REACTIONS (1)
  - TARDIVE DYSKINESIA [None]
